FAERS Safety Report 21005454 (Version 1)
Quarter: 2022Q2

REPORT INFORMATION
  Report Type: Spontaneous
  Country: US (occurrence: US)
  Receive Date: 20220624
  Receipt Date: 20220624
  Transmission Date: 20220721
  Serious: No
  Sender: FDA-Public Use
  Company Number: US-BRISTOL-MYERS SQUIBB COMPANY-2022-061903

PATIENT
  Age: 67 Year
  Sex: Male

DRUGS (1)
  1. REVLIMID [Suspect]
     Active Substance: LENALIDOMIDE
     Indication: Plasmacytoma
     Dosage: FREQUENCY : TAKE 1 CAPSULE BY MOUTH EVERY OTHER DAY FOR 21 DAY CYCLE. DO NOT CRUSH, BREAK OR CHEW.
     Route: 048
     Dates: start: 20171221

REACTIONS (1)
  - Intentional product use issue [Unknown]
